FAERS Safety Report 8081460-4 (Version None)
Quarter: 2012Q1

REPORT INFORMATION
  Report Type: 
  Country: None (occurrence: None)
  Receive Date: 20120130
  Receipt Date: 20120125
  Transmission Date: 20120608
  Serious: Yes (Other)
  Sender: FDA-Public Use
  Company Number: US-PFIZER INC-2012021074

PATIENT
  Sex: Male
  Weight: 90.703 kg

DRUGS (4)
  1. LYRICA [Suspect]
     Indication: PAIN
     Dosage: 200 MG, 3X/DAY
     Route: 048
  2. ULTRAM [Concomitant]
     Indication: DEPRESSION
     Dosage: 400 MG, UNK
  3. CYMBALTA [Concomitant]
     Indication: DEPRESSION
     Dosage: 60 MG, 1X/DAY
  4. LYRICA [Suspect]
     Indication: NEUROPATHY PERIPHERAL
     Dosage: UNK
     Route: 048
     Dates: end: 20111101

REACTIONS (9)
  - LOSS OF CONSCIOUSNESS [None]
  - WEIGHT DECREASED [None]
  - VISION BLURRED [None]
  - SOMNOLENCE [None]
  - WEIGHT INCREASED [None]
  - HEAD INJURY [None]
  - HUNGER [None]
  - PERIORBITAL HAEMATOMA [None]
  - CONVULSION [None]
